FAERS Safety Report 9575731 (Version 1)
Quarter: 2013Q4

REPORT INFORMATION
  Report Type: Spontaneous
  Country: US (occurrence: US)
  Receive Date: 20131001
  Receipt Date: 20131001
  Transmission Date: 20140711
  Serious: No
  Sender: FDA-Public Use
  Company Number: US-AMGEN-USASP2012041486

PATIENT
  Age: 52 Year
  Sex: Female
  Weight: 107.3 kg

DRUGS (5)
  1. PROCRIT [Suspect]
     Indication: BLOOD DISORDER
     Dosage: UNK UNK, QWK
     Route: 058
     Dates: start: 201201
  2. PEGASYS [Concomitant]
     Indication: HEPATITIS
     Dosage: UNK
     Dates: start: 201201
  3. PEGASYS [Concomitant]
     Indication: HEPATIC CIRRHOSIS
  4. RIBAVIRIN [Concomitant]
     Indication: HEPATITIS
     Dosage: UNK
     Route: 048
     Dates: start: 201201
  5. RIBAVIRIN [Concomitant]
     Indication: HEPATIC CIRRHOSIS

REACTIONS (1)
  - Medication error [Not Recovered/Not Resolved]
